FAERS Safety Report 8067692-X (Version None)
Quarter: 2012Q1

REPORT INFORMATION
  Report Type: 
  Country: None (occurrence: None)
  Receive Date: 20120124
  Receipt Date: 20120118
  Transmission Date: 20120608
  Serious: Yes (Hospitalization, Other)
  Sender: FDA-Public Use
  Company Number: GXKR2012DE000622

PATIENT

DRUGS (4)
  1. DICLOFENAC SODIUM [Suspect]
     Indication: PAIN
     Dosage: 1X75 MG AND 1X 100 MG ON 11 JUL 2011 PER OS
     Route: 048
     Dates: start: 20110711, end: 20110711
  2. ACETAMINOPHEN [Suspect]
     Indication: PAIN
     Dosage: 1X1 TABLET EVERY SEVENTH HOUR PER OS
     Route: 048
     Dates: start: 20110708, end: 20110710
  3. LIDOCAINE [Concomitant]
     Indication: PAIN
     Dosage: 1X1 SYRINGE LOCAL ON 11 JUL 2011
     Dates: start: 20110711, end: 20110711
  4. PREDNISOLONE [Concomitant]
     Indication: PAIN
     Dates: start: 20110711

REACTIONS (1)
  - HEPATITIS ACUTE [None]
